FAERS Safety Report 5387779-X (Version None)
Quarter: 2007Q3

REPORT INFORMATION
  Report Type: 
  Country: None (occurrence: None)
  Receive Date: 20070712
  Receipt Date: 20070712
  Transmission Date: 20080115
  Serious: Yes (Hospitalization)
  Sender: FDA-Public Use
  Company Number: None

PATIENT
  Age: 62 Year
  Sex: Male

DRUGS (5)
  1. BUPROPION HCL [Suspect]
     Indication: SMOKING CESSATION THERAPY
     Dosage: 150MG BID
  2. COUMADIN [Concomitant]
  3. VICODIN [Concomitant]
  4. COLACE [Concomitant]
  5. NICOTINE [Suspect]

REACTIONS (4)
  - ANAEMIA [None]
  - DRUG INTERACTION [None]
  - POST PROCEDURAL COMPLICATION [None]
  - TACHYCARDIA [None]
